FAERS Safety Report 9119764 (Version 1)
Quarter: 2013Q1

REPORT INFORMATION
  Report Type: Spontaneous
  Country: US (occurrence: US)
  Receive Date: 20130226
  Receipt Date: 20130226
  Transmission Date: 20140127
  Serious: Yes (Hospitalization)
  Sender: FDA-Public Use
  Company Number: US-BAYER-2013-022157

PATIENT
  Age: 27 Year
  Sex: Female
  Weight: 61.22 kg

DRUGS (10)
  1. YAZ [Suspect]
  2. GIANVI [Suspect]
  3. AXERT [Concomitant]
     Dosage: 12.5 MG, UNK
  4. NORCO [Concomitant]
     Indication: PAIN
  5. DILAUDID [Concomitant]
     Indication: CHEST PAIN
  6. TYLENOL [Concomitant]
  7. EXCEDRIN [Concomitant]
     Indication: HEADACHE
  8. MAALOX [Concomitant]
     Indication: ABDOMINAL PAIN
  9. ZOFRAN [Concomitant]
     Indication: ABDOMINAL PAIN
  10. OMEPRAZOLE [Concomitant]

REACTIONS (3)
  - Pulmonary embolism [Recovered/Resolved]
  - Deep vein thrombosis [Recovering/Resolving]
  - Pelvic venous thrombosis [Recovering/Resolving]
